FAERS Safety Report 6896728-4 (Version None)
Quarter: 2010Q3

REPORT INFORMATION
  Report Type: 
  Country: None (occurrence: None)
  Receive Date: 20100802
  Receipt Date: 20070208
  Transmission Date: 20110219
  Serious: No
  Sender: FDA-Public Use
  Company Number: US-PFIZER INC-2006049643

PATIENT
  Sex: Male
  Weight: 116.12 kg

DRUGS (1)
  1. PREGABALIN [Suspect]
     Indication: DIABETIC NEUROPATHY
     Route: 048

REACTIONS (4)
  - DRUG DEPENDENCE [None]
  - DRUG TOXICITY [None]
  - INTENTIONAL DRUG MISUSE [None]
  - MUSCLE TWITCHING [None]
